FAERS Safety Report 13693199 (Version 1)
Quarter: 2017Q2

REPORT INFORMATION
  Report Type: Report from Study
  Country: BR (occurrence: BR)
  Receive Date: 20170627
  Receipt Date: 20170627
  Transmission Date: 20170830
  Serious: Yes (Other)
  Sender: FDA-Public Use
  Company Number: PHHY2017BR093311

PATIENT
  Sex: Female
  Weight: 73 kg

DRUGS (2)
  1. DIOVAN [Suspect]
     Active Substance: VALSARTAN
     Indication: HYPERTENSION
     Route: 065
  2. DIOVAN AMLO FIX [Suspect]
     Active Substance: AMLODIPINE\VALSARTAN
     Indication: HYPERTENSION
     Dosage: 1 DF (AMLODIPINE 10/VALSARTAN 160 MG), QD
     Route: 048

REACTIONS (4)
  - Peripheral swelling [Recovered/Resolved]
  - Weight increased [Unknown]
  - Diabetes mellitus [Unknown]
  - Varicose vein [Unknown]
